FAERS Safety Report 10179583 (Version 1)
Quarter: 2014Q2

REPORT INFORMATION
  Report Type: Spontaneous
  Country: US (occurrence: US)
  Receive Date: 20140519
  Receipt Date: 20140519
  Transmission Date: 20141212
  Serious: No
  Sender: FDA-Public Use
  Company Number: US-PFIZER INC-2014136309

PATIENT
  Age: 67 Year
  Sex: Female
  Weight: 81.6 kg

DRUGS (2)
  1. NICOTROL INHALER [Suspect]
     Indication: SMOKING CESSATION THERAPY
     Dosage: UNK
  2. NICOTROL INHALER [Suspect]
     Dosage: UNK
     Dates: start: 201402, end: 2014

REACTIONS (2)
  - Dry mouth [Unknown]
  - Oropharyngeal pain [Unknown]
